FAERS Safety Report 8610967-3 (Version None)
Quarter: 2012Q3

REPORT INFORMATION
  Report Type: 
  Country: None (occurrence: None)
  Receive Date: 20120822
  Receipt Date: 20111201
  Transmission Date: 20120928
  Serious: Yes (Other)
  Sender: FDA-Public Use
  Company Number: US-009507513-1208USA007157

PATIENT

DRUGS (3)
  1. REBETOL [Suspect]
     Dosage: UNK
     Route: 048
     Dates: start: 20110121
  2. PEGINTERFERON ALFA-2A [Suspect]
     Indication: HEPATITIS C
     Dosage: 180 MICROGRAM, QW
     Route: 058
     Dates: start: 20110121
  3. VICTRELIS [Suspect]
     Indication: HEPATITIS C
     Dosage: 800 MG, TID
     Route: 048
     Dates: start: 20110907, end: 20111130

REACTIONS (8)
  - WEIGHT INCREASED [None]
  - PAIN [None]
  - DRUG INEFFECTIVE [None]
  - SWELLING [None]
  - PYREXIA [None]
  - STRESS [None]
  - ERYTHEMA [None]
  - FATIGUE [None]
